FAERS Safety Report 6356161-0 (Version None)
Quarter: 2009Q3

REPORT INFORMATION
  Report Type: 
  Country: None (occurrence: None)
  Receive Date: 20090915
  Receipt Date: 20090909
  Transmission Date: 20100115
  Serious: Yes (Other)
  Sender: FDA-Public Use
  Company Number: AU-BRISTOL-MYERS SQUIBB COMPANY-14775266

PATIENT
  Sex: Male

DRUGS (3)
  1. ETOPOPHOS PRESERVATIVE FREE [Suspect]
  2. CARBOPLATIN [Suspect]
  3. IFOSFAMIDE [Suspect]

REACTIONS (1)
  - PANCREATITIS [None]
